FAERS Safety Report 26193523 (Version 1)
Quarter: 2025Q4

REPORT INFORMATION
  Report Type: Spontaneous
  Country: JP (occurrence: JP)
  Receive Date: 20251224
  Receipt Date: 20251224
  Transmission Date: 20260118
  Serious: Yes (Life-Threatening)
  Sender: EISAI
  Company Number: JP-Eisai-202512482_LEN_P_1

PATIENT
  Sex: Female

DRUGS (1)
  1. LENVIMA [Suspect]
     Active Substance: LENVATINIB
     Indication: Thyroid cancer
     Dosage: DOSE AND FREQUENCY UNKNOWN
     Route: 048
     Dates: start: 2025, end: 2025

REACTIONS (1)
  - Pulmonary cavitation [Not Recovered/Not Resolved]

NARRATIVE: CASE EVENT DATE: 20250101
